FAERS Safety Report 10077232 (Version 2)
Quarter: 2014Q2

REPORT INFORMATION
  Report Type: Spontaneous
  Country: US (occurrence: US)
  Receive Date: 20140414
  Receipt Date: 20140414
  Transmission Date: 20141212
  Serious: No
  Sender: FDA-Public Use
  Company Number: US-BANPHARM-20131043

PATIENT
  Age: 77 Year
  Sex: Female
  Weight: 65.77 kg

DRUGS (9)
  1. ALEVE LIQUID GELS 220MG [Suspect]
     Dosage: 1 DF, PRN,
     Route: 048
  2. ALEVE CAPLETS [Suspect]
     Dosage: 1 DF, PRN,
     Route: 048
  3. PLAVIX [Concomitant]
  4. IMDUR [Concomitant]
  5. BAYER ASPIRIN 325 MG [Concomitant]
  6. LIPITOR [Concomitant]
  7. ATENOLOL [Concomitant]
  8. CVS DAILY GUMMIES [Concomitant]
  9. BAYER EXTRA STRENGTH BACK AND BODY ASPIRIN [Concomitant]
     Dosage: PRN,

REACTIONS (1)
  - Renal disorder [Recovered/Resolved]
